FAERS Safety Report 8959073 (Version 3)
Quarter: 2013Q1

REPORT INFORMATION
  Report Type: Other
  Country: DK (occurrence: GB)
  Receive Date: 20121212
  Receipt Date: 20130305
  Transmission Date: 20140127
  Serious: Yes (Other)
  Sender: FDA-Public Use
  Company Number: GB-FRI-1000040969

PATIENT
  Age: 41 Year
  Sex: Male

DRUGS (6)
  1. CITALOPRAM [Suspect]
     Indication: DEPRESSION
  2. QUETIAPINE [Suspect]
     Indication: BIPOLAR DISORDER
  3. LAMOTRIGINE [Concomitant]
     Indication: EPILEPSY
  4. FLUOXETINE [Concomitant]
     Indication: DEPRESSION
  5. LITHIUM [Concomitant]
     Indication: BIPOLAR DISORDER
  6. VALPROATE [Concomitant]
     Indication: BIPOLAR DISORDER

REACTIONS (5)
  - Epilepsy [Unknown]
  - Bipolar disorder [Unknown]
  - Migraine [Unknown]
  - Eczema [Unknown]
  - Drug ineffective [Unknown]
